FAERS Safety Report 18214079 (Version 1)
Quarter: 2020Q3

REPORT INFORMATION
  Report Type: Report from Study
  Country: IN (occurrence: IN)
  Receive Date: 20200831
  Receipt Date: 20200831
  Transmission Date: 20201103
  Serious: Yes (Other)
  Sender: FDA-Public Use
  Company Number: IN-MYLANLABS-2020M1075077

PATIENT
  Sex: Female

DRUGS (8)
  1. LOPINAVIR,RITONAVIR MYLAN [Suspect]
     Active Substance: LOPINAVIR\RITONAVIR
     Indication: CSF HIV ESCAPE SYNDROME
  2. ZIDOVUDINE. [Suspect]
     Active Substance: ZIDOVUDINE
     Indication: HIV INFECTION
     Dosage: UNK
     Route: 065
  3. DOLUTEGRAVIR [Suspect]
     Active Substance: DOLUTEGRAVIR
     Indication: CSF HIV ESCAPE SYNDROME
  4. ZIDOVUDINE. [Suspect]
     Active Substance: ZIDOVUDINE
     Indication: CSF HIV ESCAPE SYNDROME
  5. LAMIVUDINE. [Suspect]
     Active Substance: LAMIVUDINE
     Indication: HIV INFECTION
     Dosage: UNK
     Route: 065
  6. LOPINAVIR,RITONAVIR MYLAN [Suspect]
     Active Substance: LOPINAVIR\RITONAVIR
     Indication: HIV INFECTION
     Dosage: UNK
     Route: 065
  7. LAMIVUDINE. [Suspect]
     Active Substance: LAMIVUDINE
     Indication: CSF HIV ESCAPE SYNDROME
  8. DOLUTEGRAVIR [Suspect]
     Active Substance: DOLUTEGRAVIR
     Indication: HIV INFECTION
     Dosage: UNK
     Route: 065

REACTIONS (1)
  - Virologic failure [Unknown]
